FAERS Safety Report 7412893-4 (Version None)
Quarter: 2011Q2

REPORT INFORMATION
  Report Type: 
  Country: None (occurrence: None)
  Receive Date: 20110413
  Receipt Date: 20110314
  Transmission Date: 20111010
  Serious: Yes (Hospitalization)
  Sender: FDA-Public Use
  Company Number: US-BAYER-2011-023007

PATIENT
  Age: 47 Year
  Sex: Female
  Weight: 63.492 kg

DRUGS (8)
  1. VITAMIN D [Concomitant]
  2. YASMIN [Suspect]
     Indication: MENOMETRORRHAGIA
     Dosage: UNK
     Dates: start: 20030201, end: 20050501
  3. XANAX [Concomitant]
     Indication: ANXIETY
     Dosage: UNK
  4. MOTRIN [Concomitant]
     Indication: PYREXIA
     Dosage: UNK
     Dates: start: 20040501
  5. LEXAPRO [Concomitant]
     Indication: DEPRESSION
  6. MULTI-VITAMIN [Concomitant]
  7. CALCIUM [Concomitant]
  8. NAPROXEN [Concomitant]
     Indication: PLEURISY
     Dosage: UNK
     Dates: start: 20050404

REACTIONS (1)
  - PULMONARY EMBOLISM [None]
